FAERS Safety Report 8624802-0 (Version None)
Quarter: 2012Q3

REPORT INFORMATION
  Report Type: 
  Country: None (occurrence: None)
  Receive Date: 20120827
  Receipt Date: 20120817
  Transmission Date: 20120928
  Serious: Yes (Hospitalization)
  Sender: FDA-Public Use
  Company Number: GB-ASTRAZENECA-2012SE59949

PATIENT
  Age: 32 Year
  Sex: Female

DRUGS (2)
  1. QUETIAPINE [Suspect]
     Indication: BORDERLINE PERSONALITY DISORDER
     Route: 048
     Dates: start: 20120501, end: 20120501
  2. QUETIAPINE [Suspect]
     Indication: AFFECT LABILITY
     Route: 048
     Dates: start: 20120501, end: 20120501

REACTIONS (1)
  - HEMIPLEGIC MIGRAINE [None]
